FAERS Safety Report 24843740 (Version 2)
Quarter: 2025Q1

REPORT INFORMATION
  Report Type: Spontaneous
  Country: JP (occurrence: JP)
  Receive Date: 20250115
  Receipt Date: 20250116
  Transmission Date: 20250409
  Serious: Yes (Hospitalization, Other)
  Sender: UCB
  Company Number: JP-UCBJ-CD202500182UCBPHAPROD

PATIENT
  Sex: Female

DRUGS (5)
  1. VIMPAT [Suspect]
     Active Substance: LACOSAMIDE
     Indication: Hippocampal sclerosis
     Route: 048
     Dates: end: 202406
  2. VIMPAT [Suspect]
     Active Substance: LACOSAMIDE
     Indication: Temporal lobe epilepsy
     Route: 048
  3. VIMPAT [Suspect]
     Active Substance: LACOSAMIDE
     Indication: Off label use
  4. TEGRETOL [Concomitant]
     Active Substance: CARBAMAZEPINE
     Indication: Product used for unknown indication
     Route: 048
     Dates: end: 202406
  5. TEGRETOL [Concomitant]
     Active Substance: CARBAMAZEPINE
     Route: 048

REACTIONS (5)
  - Hospitalisation [Unknown]
  - Epilepsy [Recovered/Resolved]
  - Fall [Unknown]
  - Psychiatric symptom [Unknown]
  - Off label use [Unknown]
